FAERS Safety Report 7771946-1 (Version None)
Quarter: 2011Q3

REPORT INFORMATION
  Report Type: 
  Country: None (occurrence: None)
  Receive Date: 20110922
  Receipt Date: 20100902
  Transmission Date: 20111222
  Serious: Yes (Other)
  Sender: FDA-Public Use
  Company Number: US-ASTRAZENECA-2007UW09070

PATIENT
  Age: 12448 Day
  Sex: Male
  Weight: 113.4 kg

DRUGS (13)
  1. XANAX [Concomitant]
     Dosage: 2-4 MG
     Dates: start: 20030307
  2. SEROQUEL [Suspect]
     Dosage: 500-1200 MG
     Route: 048
     Dates: start: 20030101, end: 20080114
  3. AMBIEN [Concomitant]
     Dosage: 10 MG AT BEDTIME AS NEEDED
     Dates: start: 20050301
  4. RISPERDAL [Concomitant]
     Indication: SCHIZOPHRENIA
     Dates: start: 20010101
  5. SEROQUEL [Suspect]
     Indication: SCHIZOPHRENIA
     Dosage: 300 MG,2-3 TABLETS DAILY, 700 MG
     Route: 048
     Dates: start: 20030502
  6. ACTOS [Concomitant]
     Dates: start: 20061121
  7. PLAVIX [Concomitant]
     Route: 048
     Dates: start: 20061121
  8. EFFEXOR [Concomitant]
     Dates: start: 20030502
  9. TIZANIDINE HCL [Concomitant]
     Dosage: 4MG BID TO TID, 4 MG 2 DAILY
     Route: 048
     Dates: start: 20050301
  10. ASPIRIN [Concomitant]
     Dates: start: 20050301
  11. LANTUS [Concomitant]
     Dosage: 20 AT NIGHT
     Dates: start: 20061121
  12. GEODON [Concomitant]
  13. LOPRESSOR [Concomitant]
     Dates: start: 20061121

REACTIONS (6)
  - INSULIN-REQUIRING TYPE 2 DIABETES MELLITUS [None]
  - TYPE 2 DIABETES MELLITUS [None]
  - TARDIVE DYSKINESIA [None]
  - HYPERGLYCAEMIA [None]
  - GLYCOSURIA [None]
  - RESTLESS LEGS SYNDROME [None]
